FAERS Safety Report 6150884-4 (Version None)
Quarter: 2009Q2

REPORT INFORMATION
  Report Type: 
  Country: None (occurrence: None)
  Receive Date: 20090408
  Receipt Date: 20090403
  Transmission Date: 20091009
  Serious: Yes (Other)
  Sender: FDA-Public Use
  Company Number: CHPA2009US08470

PATIENT
  Age: 24 Year
  Sex: Male

DRUGS (6)
  1. GAS-X EXTRA STR CHEWABLE TABLETS UNKNOWN (NCH) (SIMETHICONE) CHEWABLE [Suspect]
     Indication: ABDOMINAL DISCOMFORT
     Dosage: 250 MG, QD, ORAL; 250 MG, QD, ORAL
     Route: 048
     Dates: start: 20090326, end: 20090326
  2. GAS-X EXTRA STR CHEWABLE TABLETS UNKNOWN (NCH) (SIMETHICONE) CHEWABLE [Suspect]
     Indication: ABDOMINAL DISTENSION
     Dosage: 250 MG, QD, ORAL; 250 MG, QD, ORAL
     Route: 048
     Dates: start: 20090326, end: 20090326
  3. GAS-X EXTRA STR CHEWABLE TABLETS UNKNOWN (NCH) (SIMETHICONE) CHEWABLE [Suspect]
     Indication: FLATULENCE
     Dosage: 250 MG, QD, ORAL; 250 MG, QD, ORAL
     Route: 048
     Dates: start: 20090326, end: 20090326
  4. GAS-X EXTRA STR CHEWABLE TABLETS UNKNOWN (NCH) (SIMETHICONE) CHEWABLE [Suspect]
     Indication: ABDOMINAL DISCOMFORT
     Dosage: 250 MG, QD, ORAL; 250 MG, QD, ORAL
     Route: 048
     Dates: start: 20090402
  5. GAS-X EXTRA STR CHEWABLE TABLETS UNKNOWN (NCH) (SIMETHICONE) CHEWABLE [Suspect]
     Indication: ABDOMINAL DISTENSION
     Dosage: 250 MG, QD, ORAL; 250 MG, QD, ORAL
     Route: 048
     Dates: start: 20090402
  6. GAS-X EXTRA STR CHEWABLE TABLETS UNKNOWN (NCH) (SIMETHICONE) CHEWABLE [Suspect]
     Indication: FLATULENCE
     Dosage: 250 MG, QD, ORAL; 250 MG, QD, ORAL
     Route: 048
     Dates: start: 20090402

REACTIONS (3)
  - CONSTIPATION [None]
  - DRUG INEFFECTIVE [None]
  - HAEMATOCHEZIA [None]
